FAERS Safety Report 4904915-7 (Version None)
Quarter: 2006Q1

REPORT INFORMATION
  Report Type: 
  Country: None (occurrence: None)
  Receive Date: 20060208
  Receipt Date: 20051021
  Transmission Date: 20060701
  Serious: No
  Sender: FDA-Public Use
  Company Number: US-GLAXOSMITHKLINE-A0579161A

PATIENT
  Age: 55 Year
  Sex: Female

DRUGS (3)
  1. PAXIL [Suspect]
     Dosage: 20MG PER DAY
     Route: 048
     Dates: start: 20050101
  2. ZOCOR [Concomitant]
  3. VERAPAMIL [Concomitant]

REACTIONS (2)
  - ANXIETY [None]
  - CRYING [None]
